FAERS Safety Report 19815460 (Version 2)
Quarter: 2021Q3

REPORT INFORMATION
  Report Type: Spontaneous
  Country: US (occurrence: US)
  Receive Date: 20210910
  Receipt Date: 20210924
  Transmission Date: 20211014
  Serious: No
  Sender: FDA-Public Use
  Company Number: US-BIOHAVEN PHARMACEUTICALS-2021BHV01133

PATIENT
  Sex: Female

DRUGS (1)
  1. NURTEC ODT [Suspect]
     Active Substance: RIMEGEPANT SULFATE
     Dosage: UNK

REACTIONS (1)
  - Death [None]
